FAERS Safety Report 17274504 (Version 3)
Quarter: 2020Q1

REPORT INFORMATION
  Report Type: Report from Study
  Country: EG (occurrence: EG)
  Receive Date: 20200115
  Receipt Date: 20200203
  Transmission Date: 20200409
  Serious: Yes (Death, Hospitalization, Other)
  Sender: FDA-Public Use
  Company Number: EG-SEATTLE GENETICS-2020SGN00057

PATIENT
  Sex: Male

DRUGS (1)
  1. BRENTUXIMAB VEDOTIN-MPI [Suspect]
     Active Substance: BRENTUXIMAB VEDOTIN
     Indication: HODGKIN^S DISEASE
     Dosage: UNK
     Route: 042
     Dates: start: 20191221, end: 20200117

REACTIONS (7)
  - Bone pain [Unknown]
  - Death [Fatal]
  - Brain stem stroke [Unknown]
  - Oedema peripheral [Unknown]
  - Diarrhoea [Unknown]
  - Vomiting [Unknown]
  - Anaemia [Unknown]
